FAERS Safety Report 22103748 (Version 3)
Quarter: 2023Q1

REPORT INFORMATION
  Report Type: Spontaneous
  Country: TH (occurrence: TH)
  Receive Date: 20230316
  Receipt Date: 20230323
  Transmission Date: 20230418
  Serious: Yes (Hospitalization)
  Sender: FDA-Public Use
  Company Number: TH-002147023-NVSC2023TH055164

PATIENT
  Age: 58 Year
  Sex: Female

DRUGS (85)
  1. ENTRESTO [Suspect]
     Active Substance: SACUBITRIL\VALSARTAN
     Indication: Product used for unknown indication
     Dosage: 100 UNK
     Route: 065
     Dates: start: 20220915
  2. ENTRESTO [Suspect]
     Active Substance: SACUBITRIL\VALSARTAN
     Dosage: 100 UNK
     Route: 065
     Dates: start: 20221021
  3. ENTRESTO [Suspect]
     Active Substance: SACUBITRIL\VALSARTAN
     Dosage: 100 UNK
     Route: 065
     Dates: start: 20230119
  4. ENTRESTO [Suspect]
     Active Substance: SACUBITRIL\VALSARTAN
     Dosage: 100 UNK
     Route: 065
     Dates: start: 20230223
  5. FUROSEMIDE [Concomitant]
     Active Substance: FUROSEMIDE
     Indication: Product used for unknown indication
     Dosage: 40 UNK
     Route: 065
  6. FUROSEMIDE [Concomitant]
     Active Substance: FUROSEMIDE
     Dosage: 20 UNK
     Route: 065
     Dates: start: 20220217
  7. FUROSEMIDE [Concomitant]
     Active Substance: FUROSEMIDE
     Dosage: 20 UNK
     Route: 065
     Dates: start: 20220324
  8. FUROSEMIDE [Concomitant]
     Active Substance: FUROSEMIDE
     Dosage: 20 UNK
     Route: 065
     Dates: start: 20220512
  9. FUROSEMIDE [Concomitant]
     Active Substance: FUROSEMIDE
     Dosage: 20 UNK
     Route: 065
     Dates: start: 20220915
  10. FUROSEMIDE [Concomitant]
     Active Substance: FUROSEMIDE
     Dosage: 20 UNK
     Route: 065
     Dates: start: 20221021
  11. FUROSEMIDE [Concomitant]
     Active Substance: FUROSEMIDE
     Dosage: 40 UNK
     Route: 065
     Dates: start: 20230119
  12. FUROSEMIDE [Concomitant]
     Active Substance: FUROSEMIDE
     Dosage: 20 UNK
     Route: 065
     Dates: start: 20230223
  13. BISOPROLOL [Concomitant]
     Active Substance: BISOPROLOL
     Indication: Product used for unknown indication
     Dosage: UNK
     Route: 065
  14. EMPAGLIFLOZIN [Concomitant]
     Active Substance: EMPAGLIFLOZIN
     Indication: Product used for unknown indication
     Dosage: 10 UNK
     Route: 065
  15. EMPAGLIFLOZIN [Concomitant]
     Active Substance: EMPAGLIFLOZIN
     Dosage: 10 UNK
     Route: 065
     Dates: start: 20220217
  16. EMPAGLIFLOZIN [Concomitant]
     Active Substance: EMPAGLIFLOZIN
     Dosage: 10 UNK
     Route: 065
     Dates: start: 20220324
  17. EMPAGLIFLOZIN [Concomitant]
     Active Substance: EMPAGLIFLOZIN
     Dosage: 10 UNK
     Route: 065
     Dates: start: 20220512
  18. EMPAGLIFLOZIN [Concomitant]
     Active Substance: EMPAGLIFLOZIN
     Dosage: 10 UNK
     Route: 065
     Dates: start: 20220818
  19. EMPAGLIFLOZIN [Concomitant]
     Active Substance: EMPAGLIFLOZIN
     Dosage: 10 UNK
     Route: 065
     Dates: start: 20230119
  20. SPIRONOLACTONE [Concomitant]
     Active Substance: SPIRONOLACTONE
     Indication: Product used for unknown indication
     Dosage: 12.5 UNK
     Route: 065
  21. SPIRONOLACTONE [Concomitant]
     Active Substance: SPIRONOLACTONE
     Dosage: 12.5 UNK
     Route: 065
     Dates: start: 20221021
  22. SPIRONOLACTONE [Concomitant]
     Active Substance: SPIRONOLACTONE
     Dosage: 12.5 UNK
     Route: 065
     Dates: start: 20230119
  23. SPIRONOLACTONE [Concomitant]
     Active Substance: SPIRONOLACTONE
     Dosage: 12.5 UNK
     Route: 065
     Dates: start: 20230223
  24. GEMIGLIPTIN [Concomitant]
     Active Substance: GEMIGLIPTIN
     Indication: Product used for unknown indication
     Dosage: 50 UNK
     Route: 065
  25. GEMIGLIPTIN [Concomitant]
     Active Substance: GEMIGLIPTIN
     Dosage: 50 UNK
     Route: 065
     Dates: start: 20220324
  26. GEMIGLIPTIN [Concomitant]
     Active Substance: GEMIGLIPTIN
     Dosage: 50 UNK
     Route: 065
     Dates: start: 20220512
  27. GEMIGLIPTIN [Concomitant]
     Active Substance: GEMIGLIPTIN
     Dosage: 50 UNK
     Route: 065
     Dates: start: 20220818
  28. GEMIGLIPTIN [Concomitant]
     Active Substance: GEMIGLIPTIN
     Dosage: 50 UNK
     Route: 065
     Dates: start: 20220915
  29. GEMIGLIPTIN [Concomitant]
     Active Substance: GEMIGLIPTIN
     Dosage: 50 UNK
     Route: 065
     Dates: start: 20221021
  30. GEMIGLIPTIN [Concomitant]
     Active Substance: GEMIGLIPTIN
     Dosage: 50 UNK
     Route: 065
     Dates: start: 20230119
  31. GEMIGLIPTIN [Concomitant]
     Active Substance: GEMIGLIPTIN
     Dosage: 50 UNK
     Route: 065
     Dates: start: 20230223
  32. ASPIRIN [Concomitant]
     Active Substance: ASPIRIN
     Indication: Product used for unknown indication
     Dosage: UNK
     Route: 065
  33. ASPIRIN [Concomitant]
     Active Substance: ASPIRIN
     Dosage: UNK
     Route: 065
     Dates: start: 20220217
  34. ASPIRIN [Concomitant]
     Active Substance: ASPIRIN
     Dosage: UNK
     Route: 065
     Dates: start: 20220324
  35. ASPIRIN [Concomitant]
     Active Substance: ASPIRIN
     Dosage: UNK
     Route: 065
     Dates: start: 20220512
  36. ASPIRIN [Concomitant]
     Active Substance: ASPIRIN
     Dosage: UNK
     Route: 065
     Dates: start: 20220818
  37. ASPIRIN [Concomitant]
     Active Substance: ASPIRIN
     Dosage: UNK
     Route: 065
     Dates: start: 20220915
  38. ASPIRIN [Concomitant]
     Active Substance: ASPIRIN
     Dosage: UNK
     Route: 065
     Dates: start: 20221021
  39. ASPIRIN [Concomitant]
     Active Substance: ASPIRIN
     Dosage: UNK
     Route: 065
     Dates: start: 20230119
  40. ASPIRIN [Concomitant]
     Active Substance: ASPIRIN
     Dosage: UNK
     Route: 065
     Dates: start: 20230223
  41. CLOPIDOGREL [Concomitant]
     Active Substance: CLOPIDOGREL BISULFATE
     Indication: Product used for unknown indication
     Dosage: UNK
     Route: 065
  42. CLOPIDOGREL [Concomitant]
     Active Substance: CLOPIDOGREL BISULFATE
     Dosage: UNK
     Route: 065
     Dates: start: 20220324
  43. CLOPIDOGREL [Concomitant]
     Active Substance: CLOPIDOGREL BISULFATE
     Dosage: UNK
     Route: 065
     Dates: start: 20220512
  44. CLOPIDOGREL [Concomitant]
     Active Substance: CLOPIDOGREL BISULFATE
     Dosage: UNK
     Route: 065
     Dates: start: 20220818
  45. CLOPIDOGREL [Concomitant]
     Active Substance: CLOPIDOGREL BISULFATE
     Dosage: UNK
     Route: 065
     Dates: start: 20220915
  46. CLOPIDOGREL [Concomitant]
     Active Substance: CLOPIDOGREL BISULFATE
     Dosage: UNK
     Route: 065
     Dates: start: 20221021
  47. CLOPIDOGREL [Concomitant]
     Active Substance: CLOPIDOGREL BISULFATE
     Dosage: UNK
     Route: 065
     Dates: start: 20230223
  48. ATORVASTATIN [Concomitant]
     Active Substance: ATORVASTATIN
     Indication: Product used for unknown indication
     Dosage: UNK
     Route: 065
  49. ATORVASTATIN [Concomitant]
     Active Substance: ATORVASTATIN
     Dosage: UNK
     Route: 065
     Dates: start: 20220217
  50. ATORVASTATIN [Concomitant]
     Active Substance: ATORVASTATIN
     Dosage: UNK
     Route: 065
     Dates: start: 20220324
  51. ATORVASTATIN [Concomitant]
     Active Substance: ATORVASTATIN
     Dosage: UNK
     Route: 065
     Dates: start: 20220512
  52. ATORVASTATIN [Concomitant]
     Active Substance: ATORVASTATIN
     Dosage: UNK
     Route: 065
     Dates: start: 20220818
  53. ATORVASTATIN [Concomitant]
     Active Substance: ATORVASTATIN
     Dosage: UNK
     Route: 065
     Dates: start: 20220915
  54. ATORVASTATIN [Concomitant]
     Active Substance: ATORVASTATIN
     Dosage: UNK
     Route: 065
     Dates: start: 20221021
  55. ATORVASTATIN [Concomitant]
     Active Substance: ATORVASTATIN
     Dosage: UNK
     Route: 065
     Dates: start: 20230119
  56. ATORVASTATIN [Concomitant]
     Active Substance: ATORVASTATIN
     Dosage: UNK
     Route: 065
     Dates: start: 20230223
  57. EZETIMIBE [Concomitant]
     Active Substance: EZETIMIBE
     Indication: Product used for unknown indication
     Dosage: UNK
     Route: 065
  58. EZETIMIBE [Concomitant]
     Active Substance: EZETIMIBE
     Dosage: UNK
     Route: 065
     Dates: start: 20220324
  59. EZETIMIBE [Concomitant]
     Active Substance: EZETIMIBE
     Dosage: UNK
     Route: 065
     Dates: start: 20220512
  60. EZETIMIBE [Concomitant]
     Active Substance: EZETIMIBE
     Dosage: UNK
     Route: 065
     Dates: start: 20220818
  61. EZETIMIBE [Concomitant]
     Active Substance: EZETIMIBE
     Dosage: UNK
     Route: 065
     Dates: start: 20220915
  62. EZETIMIBE [Concomitant]
     Active Substance: EZETIMIBE
     Dosage: UNK
     Route: 065
     Dates: start: 20221021
  63. EZETIMIBE [Concomitant]
     Active Substance: EZETIMIBE
     Dosage: UNK
     Route: 065
     Dates: start: 20230119
  64. EZETIMIBE [Concomitant]
     Active Substance: EZETIMIBE
     Dosage: UNK
     Route: 065
     Dates: start: 20230223
  65. LERCANIDIPINE [Concomitant]
     Active Substance: LERCANIDIPINE
     Indication: Product used for unknown indication
     Dosage: 20 UNK
     Route: 065
  66. LERCANIDIPINE [Concomitant]
     Active Substance: LERCANIDIPINE
     Dosage: 20 UNK
     Route: 065
     Dates: start: 20220217
  67. LERCANIDIPINE [Concomitant]
     Active Substance: LERCANIDIPINE
     Dosage: 20 UNK
     Route: 065
     Dates: start: 20220324
  68. LERCANIDIPINE [Concomitant]
     Active Substance: LERCANIDIPINE
     Dosage: 20 UNK
     Route: 065
     Dates: start: 20220512
  69. LERCANIDIPINE [Concomitant]
     Active Substance: LERCANIDIPINE
     Dosage: 20 UNK
     Route: 065
     Dates: start: 20220818
  70. LERCANIDIPINE [Concomitant]
     Active Substance: LERCANIDIPINE
     Dosage: 20 UNK
     Route: 065
     Dates: start: 20220915
  71. LERCANIDIPINE [Concomitant]
     Active Substance: LERCANIDIPINE
     Dosage: 20 UNK
     Route: 065
     Dates: start: 20221021
  72. LERCANIDIPINE [Concomitant]
     Active Substance: LERCANIDIPINE
     Dosage: 20 UNK
     Route: 065
     Dates: start: 20230119
  73. LERCANIDIPINE [Concomitant]
     Active Substance: LERCANIDIPINE
     Dosage: 20 UNK
     Route: 065
     Dates: start: 20230223
  74. ISDN [Concomitant]
     Indication: Product used for unknown indication
     Dosage: 20 UNK
     Route: 065
  75. ISDN [Concomitant]
     Dosage: 20 UNK
     Route: 065
     Dates: start: 20221021
  76. ISDN [Concomitant]
     Dosage: 20 UNK
     Route: 065
     Dates: start: 20230119
  77. ISDN [Concomitant]
     Dosage: 20 UNK
     Route: 065
     Dates: start: 20230223
  78. QUETIAPINE [Concomitant]
     Active Substance: QUETIAPINE
     Indication: Product used for unknown indication
     Dosage: 25 UNK
     Route: 065
  79. ESCITALOPRAM [Concomitant]
     Active Substance: ESCITALOPRAM OXALATE
     Indication: Product used for unknown indication
     Dosage: 10 UNK
     Route: 065
  80. ESCITALOPRAM [Concomitant]
     Active Substance: ESCITALOPRAM OXALATE
     Dosage: 10 UNK
     Route: 065
     Dates: start: 20221021
  81. ESCITALOPRAM [Concomitant]
     Active Substance: ESCITALOPRAM OXALATE
     Dosage: 10 UNK
     Route: 065
     Dates: start: 20230119
  82. ESCITALOPRAM [Concomitant]
     Active Substance: ESCITALOPRAM OXALATE
     Dosage: 10 UNK
     Route: 065
     Dates: start: 20230223
  83. FBC [Concomitant]
     Indication: Product used for unknown indication
     Dosage: 600 UNK
     Route: 065
  84. FBC [Concomitant]
     Dosage: 600 UNK
     Route: 065
     Dates: start: 20230119
  85. FBC [Concomitant]
     Dosage: 600 UNK
     Route: 065
     Dates: start: 20230223

REACTIONS (14)
  - Inappropriate antidiuretic hormone secretion [Unknown]
  - Dizziness [Unknown]
  - Cardiac failure acute [Unknown]
  - Oedema peripheral [Recovered/Resolved]
  - Microcytic anaemia [Unknown]
  - Concomitant disease aggravated [Unknown]
  - Occult blood positive [Unknown]
  - Thalassaemia alpha [Unknown]
  - Blood glucose increased [Unknown]
  - White blood cell count increased [Unknown]
  - Hypertension [Unknown]
  - Urine protein/creatinine ratio increased [Unknown]
  - Blood creatinine increased [Unknown]
  - Wrong technique in product usage process [Unknown]
